FAERS Safety Report 9168555 (Version 4)
Quarter: 2014Q3

REPORT INFORMATION
  Report Type: Spontaneous
  Country: US (occurrence: US)
  Receive Date: 20130318
  Receipt Date: 20140804
  Transmission Date: 20150326
  Serious: Yes (Death, Hospitalization, Other)
  Sender: FDA-Public Use
  Company Number: US-009507513-1303USA007549

PATIENT
  Sex: Female

DRUGS (4)
  1. ALENDRONATE SODIUM. [Suspect]
     Active Substance: ALENDRONATE SODIUM
     Indication: OSTEOPOROSIS
     Dosage: 70 MG, UNK
     Route: 048
  2. FOSAMAX [Suspect]
     Active Substance: ALENDRONATE SODIUM
     Dosage: 70 MG, UNK
     Route: 048
     Dates: start: 20040119, end: 20040330
  3. ALENDRONATE SODIUM. [Suspect]
     Active Substance: ALENDRONATE SODIUM
     Dosage: 70 MG, UNK
     Route: 048
     Dates: start: 20100927, end: 20101221
  4. FOSAMAX [Suspect]
     Active Substance: ALENDRONATE SODIUM
     Indication: OSTEOPOROSIS
     Dosage: 70 MG, UNK
     Route: 048
     Dates: start: 2006, end: 201103

REACTIONS (16)
  - Femur fracture [Unknown]
  - Oedema peripheral [Unknown]
  - Arteriosclerosis [Fatal]
  - Depression [Unknown]
  - Anaemia postoperative [Unknown]
  - Humerus fracture [Unknown]
  - Low turnover osteopathy [Unknown]
  - Internal fixation of fracture [Unknown]
  - Dysphagia [Unknown]
  - Joint injury [Unknown]
  - Hypertension [Fatal]
  - Injury [Fatal]
  - Back pain [Unknown]
  - Myocardial infarction [Unknown]
  - Blood cholesterol increased [Unknown]
  - Pain in extremity [Unknown]

NARRATIVE: CASE EVENT DATE: 200401
